FAERS Safety Report 10533257 (Version 1)
Quarter: 2014Q4

REPORT INFORMATION
  Report Type: Spontaneous
  Country: CN (occurrence: None)
  Receive Date: 20141020
  Receipt Date: 20141020
  Transmission Date: 20150529
  Serious: Yes (Hospitalization)
  Sender: FDA-Public Use
  Company Number: CN-017355

PATIENT
  Age: 70 Year
  Sex: Male
  Weight: 79.9 kg

DRUGS (4)
  1. AMLODIPINE BESYLATE. [Concomitant]
     Active Substance: AMLODIPINE BESYLATE
  2. DEGARELIX (DEGARELIX) (240 MG, 80 MG) [Suspect]
     Active Substance: DEGARELIX
     Indication: PROSTATE CANCER
     Dates: start: 20140117, end: 20140117
  3. CADURA XL [Concomitant]
  4. LEVAMLODIPINE [Concomitant]
     Active Substance: LEVAMLODIPINE

REACTIONS (2)
  - Pneumonia [None]
  - Pleural effusion [None]

NARRATIVE: CASE EVENT DATE: 20140914
